FAERS Safety Report 6740159-4 (Version None)
Quarter: 2010Q2

REPORT INFORMATION
  Report Type: 
  Country: None (occurrence: None)
  Receive Date: 20100525
  Receipt Date: 20100517
  Transmission Date: 20101027
  Serious: Yes (Hospitalization)
  Sender: FDA-Public Use
  Company Number: A0785450A

PATIENT
  Age: 53 Year
  Sex: Male
  Weight: 70.5 kg

DRUGS (1)
  1. AVANDIA [Suspect]
     Dosage: 4MG PER DAY
     Route: 048
     Dates: start: 20040301, end: 20080101

REACTIONS (9)
  - AMNESIA [None]
  - CEREBROVASCULAR ACCIDENT [None]
  - CEREBROVASCULAR DISORDER [None]
  - DIZZINESS [None]
  - DRY MOUTH [None]
  - EYE DISORDER [None]
  - INJURY [None]
  - RENAL DISORDER [None]
  - UPPER LIMB FRACTURE [None]
